FAERS Safety Report 8724860 (Version 2)
Quarter: 2015Q2

REPORT INFORMATION
  Report Type: Report from Study
  Country: US (occurrence: US)
  Receive Date: 20120815
  Receipt Date: 20150626
  Transmission Date: 20150821
  Serious: Yes (Death)
  Sender: FDA-Public Use
  Company Number: US-ROCHE-1100678

PATIENT
  Sex: Female

DRUGS (15)
  1. ACTIVASE [Suspect]
     Active Substance: ALTEPLASE
     Route: 042
  2. HEPARIN [Concomitant]
     Active Substance: HEPARIN SODIUM
     Route: 065
  3. LIDOCAINE. [Concomitant]
     Active Substance: LIDOCAINE
     Dosage: PER MINUTE
     Route: 065
  4. POTASSIUM CHLORIDE. [Concomitant]
     Active Substance: POTASSIUM CHLORIDE
     Route: 065
  5. PHENERGAN [Concomitant]
     Active Substance: PROMETHAZINE HYDROCHLORIDE
     Route: 042
  6. LIDOCAINE. [Concomitant]
     Active Substance: LIDOCAINE
     Dosage: PER MINUTE
     Route: 065
  7. ACTIVASE [Suspect]
     Active Substance: ALTEPLASE
     Route: 042
  8. MORPHINE SULFATE. [Concomitant]
     Active Substance: MORPHINE SULFATE
     Dosage: 2-5 MG 2-30HR
     Route: 042
  9. TENORETIC [Concomitant]
     Active Substance: ATENOLOL\CHLORTHALIDONE
     Dosage: 1 Q.A.M
     Route: 065
  10. DOPAMINE [Concomitant]
     Active Substance: DOPAMINE\DOPAMINE HYDROCHLORIDE
     Route: 065
  11. LIDOCAINE. [Concomitant]
     Active Substance: LIDOCAINE
     Dosage: PER MINUTE
     Route: 065
  12. HEPARIN [Concomitant]
     Active Substance: HEPARIN SODIUM
     Route: 042
  13. ACTIVASE [Suspect]
     Active Substance: ALTEPLASE
     Indication: ACUTE MYOCARDIAL INFARCTION
     Route: 042
  14. ACTIVASE [Suspect]
     Active Substance: ALTEPLASE
     Dosage: PER 30 MINUTE
     Route: 042
  15. DOPAMINE [Concomitant]
     Active Substance: DOPAMINE\DOPAMINE HYDROCHLORIDE
     Route: 011

REACTIONS (3)
  - Death [Fatal]
  - Respiratory depression [Unknown]
  - Peripheral coldness [Unknown]
